FAERS Safety Report 4365985-0 (Version None)
Quarter: 2004Q2

REPORT INFORMATION
  Report Type: 
  Country: None (occurrence: None)
  Receive Date: 20040526
  Receipt Date: 20040520
  Transmission Date: 20050107
  Serious: Yes (Other)
  Sender: FDA-Public Use
  Company Number: 200413923US

PATIENT
  Sex: Female
  Weight: 98 kg

DRUGS (4)
  1. LANTUS [Suspect]
     Indication: DIABETES MELLITUS NON-INSULIN-DEPENDENT
     Dosage: DOSE: UNK
     Dates: start: 20030101, end: 20030101
  2. PRANDIN [Concomitant]
     Dosage: DOSE: UNK
  3. PREVACID [Concomitant]
     Dosage: DOSE: UNK
  4. TENORMIN [Concomitant]
     Dosage: DOSE: UNK

REACTIONS (4)
  - BLOOD PRESSURE INCREASED [None]
  - CHEST DISCOMFORT [None]
  - DYSPNOEA [None]
  - PAIN IN EXTREMITY [None]
